FAERS Safety Report 5836155-1 (Version None)
Quarter: 2008Q3

REPORT INFORMATION
  Report Type: 
  Country: None (occurrence: None)
  Receive Date: 20080805
  Receipt Date: 20080729
  Transmission Date: 20090109
  Serious: Yes (Death, Other)
  Sender: FDA-Public Use
  Company Number: 163-21880-08061409

PATIENT
  Age: 49 Year
  Sex: Male

DRUGS (3)
  1. REVLIMID [Suspect]
     Indication: MULTIPLE MYELOMA
     Dosage: 25 MG, Q DAY FOR 21 DAYS, ORAL
     Route: 048
     Dates: start: 20080530, end: 20080606
  2. DEXAMETHASONE TAB [Suspect]
     Indication: MULTIPLE MYELOMA
     Dosage: 40 MG WEEKLY ORAL
     Route: 048
     Dates: start: 20080606
  3. ASPIRIN [Concomitant]

REACTIONS (7)
  - BLOOD CREATININE INCREASED [None]
  - FATIGUE [None]
  - HAEMOPTYSIS [None]
  - MALAISE [None]
  - PULMONARY EMBOLISM [None]
  - SUDDEN CARDIAC DEATH [None]
  - THROMBOCYTOPENIA [None]
